FAERS Safety Report 21843314 (Version 1)
Quarter: 2023Q1

REPORT INFORMATION
  Report Type: Spontaneous
  Country: US (occurrence: US)
  Receive Date: 20230110
  Receipt Date: 20230110
  Transmission Date: 20230418
  Serious: No
  Sender: FDA-Public Use
  Company Number: US-PFIZER INC-202300008285

PATIENT

DRUGS (4)
  1. PAXLOVID [Suspect]
     Active Substance: NIRMATRELVIR\RITONAVIR
     Indication: COVID-19 treatment
     Dosage: UNK
  2. XANAX [Suspect]
     Active Substance: ALPRAZOLAM
     Indication: Depression
     Dosage: UNK
  3. XANAX [Suspect]
     Active Substance: ALPRAZOLAM
     Indication: Anxiety
  4. TEMAZEPAM [Suspect]
     Active Substance: TEMAZEPAM
     Indication: Sleep disorder
     Dosage: UNK

REACTIONS (1)
  - Nervousness [Unknown]
